FAERS Safety Report 8872642 (Version 1)
Quarter: 2012Q4

REPORT INFORMATION
  Report Type: 
  Country: AU (occurrence: AU)
  Receive Date: 20121029
  Receipt Date: 20121029
  Transmission Date: 20130627
  Serious: Yes (Other)
  Sender: FDA-Public Use
  Company Number: AU-MYLANLABS-2012S1021752

PATIENT
  Age: 49 Year
  Sex: Female

DRUGS (3)
  1. CARBOPLATIN [Suspect]
     Indication: BREAST CANCER STAGE III
     Dosage: Area under the curve 6
     Route: 065
  2. DOCETAXEL [Concomitant]
     Indication: BREAST CANCER STAGE III
     Dosage: 75 mg/m2
     Route: 065
  3. TRASTUZUMAB [Concomitant]
     Indication: BREAST CANCER STAGE III
     Dosage: 8 mg/kg loading dose
     Route: 065

REACTIONS (1)
  - Inappropriate antidiuretic hormone secretion [Recovered/Resolved]
